FAERS Safety Report 6244169-5 (Version None)
Quarter: 2009Q2

REPORT INFORMATION
  Report Type: 
  Country: None (occurrence: None)
  Receive Date: 20090625
  Receipt Date: 20090616
  Transmission Date: 20091009
  Serious: Yes (Hospitalization)
  Sender: FDA-Public Use
  Company Number: US-BIOGENIDEC-2006BI001834

PATIENT
  Age: 61 Year
  Sex: Female

DRUGS (8)
  1. AVONEX [Suspect]
     Indication: MULTIPLE SCLEROSIS
     Route: 030
     Dates: start: 20030901
  2. AVONEX [Suspect]
     Route: 030
     Dates: start: 20030901
  3. AVONEX [Suspect]
     Route: 030
     Dates: start: 20030131, end: 20030801
  4. NAPRELAN [Concomitant]
     Indication: DRUG USE FOR UNKNOWN INDICATION
  5. REQUIP [Concomitant]
     Indication: DRUG USE FOR UNKNOWN INDICATION
  6. PROVIGIL [Concomitant]
     Indication: DRUG USE FOR UNKNOWN INDICATION
  7. TYLENOL (CAPLET) [Concomitant]
     Indication: DRUG USE FOR UNKNOWN INDICATION
  8. CHEMOTHERAPY (NOS) [Concomitant]
     Indication: BREAST CANCER

REACTIONS (2)
  - BREAST CANCER [None]
  - CARDIAC FAILURE CONGESTIVE [None]
